FAERS Safety Report 23837292 (Version 1)
Quarter: 2024Q2

REPORT INFORMATION
  Report Type: Spontaneous
  Country: CN (occurrence: CN)
  Receive Date: 20240509
  Receipt Date: 20240509
  Transmission Date: 20240715
  Serious: Yes (Other)
  Sender: FDA-Public Use
  Company Number: CN-009507513-2405CHN001268

PATIENT
  Age: 60 Year
  Sex: Female

DRUGS (2)
  1. CILASTATIN SODIUM\IMIPENEM [Suspect]
     Active Substance: CILASTATIN SODIUM\IMIPENEM
     Indication: Anti-infective therapy
     Dosage: 2 G, Q8H
     Route: 041
     Dates: start: 20240409, end: 20240426
  2. LEVETIRACETAM [Concomitant]
     Active Substance: LEVETIRACETAM
     Indication: Anti-infective therapy
     Dosage: 0.5 G, BID
     Route: 041
     Dates: start: 20240408, end: 20240424

REACTIONS (2)
  - Drug-induced liver injury [Unknown]
  - Overdose [Unknown]

NARRATIVE: CASE EVENT DATE: 20240416
